FAERS Safety Report 8387438-5 (Version None)
Quarter: 2012Q2

REPORT INFORMATION
  Report Type: 
  Country: None (occurrence: None)
  Receive Date: 20120525
  Receipt Date: 20120516
  Transmission Date: 20120825
  Serious: Yes (Hospitalization)
  Sender: FDA-Public Use
  Company Number: US-ABBOTT-12P-163-0936246-00

PATIENT
  Sex: Female

DRUGS (4)
  1. CELEBREX [Concomitant]
     Indication: PRODUCT USED FOR UNKNOWN INDICATION
  2. HUMIRA [Suspect]
     Indication: RHEUMATOID ARTHRITIS
     Route: 058
     Dates: start: 20020101, end: 20120201
  3. METHOTREXATE [Concomitant]
     Indication: PRODUCT USED FOR UNKNOWN INDICATION
  4. METFORMIN HCL [Concomitant]
     Indication: DIABETES MELLITUS

REACTIONS (6)
  - WEIGHT DECREASED [None]
  - GALLBLADDER DISORDER [None]
  - ABDOMINAL PAIN [None]
  - DECREASED APPETITE [None]
  - GAIT DISTURBANCE [None]
  - NAUSEA [None]
